FAERS Safety Report 5495299-7 (Version None)
Quarter: 2007Q4

REPORT INFORMATION
  Report Type: 
  Country: None (occurrence: None)
  Receive Date: 20071023
  Receipt Date: 20071015
  Transmission Date: 20080405
  Serious: Yes (Disabling)
  Sender: FDA-Public Use
  Company Number: 2007SP003526

PATIENT
  Age: 44 Year
  Sex: Male

DRUGS (2)
  1. LUNESTA [Suspect]
     Dosage: 3 MG; HS; ORAL
     Route: 048
  2. ANALGESICS [Concomitant]

REACTIONS (3)
  - AMNESIA [None]
  - IMPRISONMENT [None]
  - ROAD TRAFFIC ACCIDENT [None]
